FAERS Safety Report 15467599 (Version 1)
Quarter: 2018Q4

REPORT INFORMATION
  Report Type: Spontaneous
  Country: US (occurrence: US)
  Receive Date: 20181005
  Receipt Date: 20181005
  Transmission Date: 20190204
  Serious: No
  Sender: FDA-Public Use
  Company Number: US-BION-006767

PATIENT
  Age: 80 Year
  Sex: Female
  Weight: 74 kg

DRUGS (1)
  1. BEXAROTENE. [Suspect]
     Active Substance: BEXAROTENE
     Indication: NON-HODGKIN^S LYMPHOMA
     Dosage: STRENGTH: 75 MG
     Route: 048
     Dates: start: 2003

REACTIONS (2)
  - Poor quality product administered [Not Recovered/Not Resolved]
  - Product physical consistency issue [Unknown]
